FAERS Safety Report 4900232-X (Version None)
Quarter: 2006Q1

REPORT INFORMATION
  Report Type: 
  Country: None (occurrence: None)
  Receive Date: 20060203
  Receipt Date: 20051221
  Transmission Date: 20060701
  Serious: Yes (Other)
  Sender: FDA-Public Use
  Company Number: 2005CG02140

PATIENT
  Age: 471 Month
  Sex: Female
  Weight: 75 kg

DRUGS (6)
  1. ARIMIDEX [Suspect]
     Indication: BREAST CANCER
     Route: 048
     Dates: start: 20050905, end: 20051218
  2. TAXOTERE [Suspect]
     Indication: BREAST CANCER
     Dosage: 6 COURSES RECEIVED
     Dates: start: 20040727
  3. NOLVADEX [Concomitant]
     Indication: BREAST CANCER
  4. LEVOTHYROX [Concomitant]
     Indication: HYPOTHYROIDISM
  5. ADRIAMYCIN PFS [Concomitant]
     Indication: BREAST CANCER
     Dosage: 6 COURSES RECEIVED
     Dates: start: 20040727
  6. CYCLOPHOSPHAMIDE [Concomitant]
     Indication: BREAST CANCER
     Dosage: 6 COURSES RECEIVED
     Dates: start: 20040727

REACTIONS (1)
  - OPTIC NEURITIS RETROBULBAR [None]
